FAERS Safety Report 6197154-6 (Version None)
Quarter: 2009Q2

REPORT INFORMATION
  Report Type: 
  Country: None (occurrence: None)
  Receive Date: 20090520
  Receipt Date: 20090514
  Transmission Date: 20091009
  Serious: Yes (Hospitalization, Disabling, Other)
  Sender: FDA-Public Use
  Company Number: US-ABBOTT-09P-163-0573209-00

PATIENT
  Sex: Female
  Weight: 68.1 kg

DRUGS (24)
  1. HUMIRA [Suspect]
     Indication: RHEUMATOID ARTHRITIS
     Route: 058
     Dates: start: 20070701, end: 20090102
  2. HUMIRA [Suspect]
     Indication: IRITIS
     Dates: start: 20090203
  3. METHOTREXATE [Concomitant]
     Indication: RHEUMATOID ARTHRITIS
     Route: 048
  4. LEVOTHYROXINE SODIUM [Concomitant]
     Indication: HYPOTHYROIDISM
     Route: 048
  5. AMLODIPINE [Concomitant]
     Indication: HYPERTENSION
     Dosage: 2.5 MG AT NOON AND 5 MG AT DINNER
     Route: 048
  6. BENICAR [Concomitant]
     Indication: HYPERTENSION
     Route: 048
  7. PREDNISONE [Concomitant]
     Indication: RHEUMATOID ARTHRITIS
     Route: 048
  8. ASPIRIN [Concomitant]
     Indication: CARDIOVASCULAR EVENT PROPHYLAXIS
     Route: 048
  9. TRICOR [Concomitant]
     Indication: BLOOD CHOLESTEROL INCREASED
     Route: 048
  10. ALENDORNATE [Concomitant]
     Indication: OSTEOPOROSIS
     Route: 048
  11. ALENDORNATE [Concomitant]
     Indication: RHEUMATOID ARTHRITIS
  12. CALCIUM [Concomitant]
     Indication: OSTEOPOROSIS
     Route: 048
  13. VITAMIN D [Concomitant]
     Indication: VITAMIN D DEFICIENCY
     Route: 047
  14. GENTEAL [Concomitant]
     Indication: DRY EYE
     Dosage: 1 GTT EACH EYE
     Route: 047
  15. VITAMIN-MINERAL COMPOUND TAB [Concomitant]
     Indication: PROPHYLAXIS
     Dosage: GEL CAPS
     Route: 048
  16. FOLIC ACID [Concomitant]
     Indication: MEDICAL DIET
     Route: 048
  17. PROTONIX [Concomitant]
     Indication: GASTROOESOPHAGEAL REFLUX DISEASE
     Route: 048
  18. MAGNESIUM SULFATE [Concomitant]
     Indication: MEDICAL DIET
     Route: 048
  19. COD LIVER OIL [Concomitant]
     Indication: PROPHYLAXIS
     Route: 048
  20. VITAMIN C TIME RELEASED [Concomitant]
     Indication: MEDICAL DIET
     Route: 048
  21. MULTIVITAMIN WITH LUTIEN [Concomitant]
     Indication: MEDICAL DIET
     Dosage: UNKNOWN
     Route: 048
  22. VICODIN [Concomitant]
     Indication: PAIN
     Route: 048
  23. AMOXICILLIN [Concomitant]
     Indication: DENTAL OPERATION
     Route: 048
  24. AMOXICILLIN [Concomitant]
     Indication: PROPHYLAXIS

REACTIONS (8)
  - ABASIA [None]
  - DRUG DOSE OMISSION [None]
  - FEMUR FRACTURE [None]
  - INJECTION SITE IRRITATION [None]
  - JOINT DISLOCATION [None]
  - MEDICAL DEVICE COMPLICATION [None]
  - MUSCLE RUPTURE [None]
  - PAIN [None]
